FAERS Safety Report 8265506-6 (Version None)
Quarter: 2012Q2

REPORT INFORMATION
  Report Type: 
  Country: None (occurrence: None)
  Receive Date: 20120406
  Receipt Date: 20120403
  Transmission Date: 20120825
  Serious: Yes (Hospitalization, Other)
  Sender: FDA-Public Use
  Company Number: BR-PFIZER INC-2012084951

PATIENT
  Age: 87 Year
  Sex: Male

DRUGS (1)
  1. NORVASC [Suspect]
     Indication: HYPERTENSION
     Dosage: 5 MG, 1X/DAY
     Route: 048

REACTIONS (4)
  - ARTERIOVENOUS FISTULA [None]
  - BREATH SOUNDS ABNORMAL [None]
  - ARTERIOVENOUS FISTULA SITE COMPLICATION [None]
  - DEVICE RELATED INFECTION [None]
